FAERS Safety Report 8165610-7 (Version None)
Quarter: 2012Q1

REPORT INFORMATION
  Report Type: 
  Country: None (occurrence: None)
  Receive Date: 20120103
  Receipt Date: 20111018
  Transmission Date: 20120608
  Serious: No
  Sender: FDA-Public Use
  Company Number: AE-2011-002440

PATIENT
  Age: 47 Year
  Sex: Male
  Weight: 100.6985 kg

DRUGS (7)
  1. PLAVIX [Concomitant]
  2. RIBAVIRIN [Concomitant]
  3. BENA (DIPHENHYDRAMINE) [Concomitant]
  4. EPOGEN [Concomitant]
  5. PEGASYS [Concomitant]
  6. INCIVEK [Suspect]
     Dosage: 2250 MG, (750 MG, 1 IN 8 HR), ORAL
     Route: 048
     Dates: start: 20110826
  7. AMBIEN [Concomitant]

REACTIONS (4)
  - DRUG DOSE OMISSION [None]
  - FEELING ABNORMAL [None]
  - WEIGHT DECREASED [None]
  - DIARRHOEA [None]
